FAERS Safety Report 9893616 (Version 1)
Quarter: 2014Q1

REPORT INFORMATION
  Report Type: Spontaneous
  Country: FR (occurrence: FR)
  Receive Date: 20140213
  Receipt Date: 20140213
  Transmission Date: 20141002
  Serious: Yes (Hospitalization)
  Sender: FDA-Public Use
  Company Number: FR-SA-2014SA014953

PATIENT
  Age: 83 Year
  Sex: Male

DRUGS (15)
  1. LISINOPRIL [Suspect]
     Indication: PRODUCT USED FOR UNKNOWN INDICATION
     Route: 048
     Dates: end: 20131120
  2. LASILIX [Suspect]
     Indication: PRODUCT USED FOR UNKNOWN INDICATION
     Route: 065
     Dates: end: 20131121
  3. AMLOR [Suspect]
     Indication: PRODUCT USED FOR UNKNOWN INDICATION
     Route: 065
     Dates: end: 20131120
  4. LYRICA [Suspect]
     Indication: PRODUCT USED FOR UNKNOWN INDICATION
     Dosage: STRENGTH: 50 MG
     Route: 065
  5. JOSIR [Suspect]
     Indication: PRODUCT USED FOR UNKNOWN INDICATION
     Dosage: STRENGTH: 0.4 MG
     Route: 065
     Dates: end: 20131121
  6. IMODIUM [Suspect]
     Indication: PRODUCT USED FOR UNKNOWN INDICATION
     Dosage: STRENGTH: 2 MG
     Route: 065
     Dates: end: 20131121
  7. IXPRIM [Suspect]
     Indication: PRODUCT USED FOR UNKNOWN INDICATION
     Dosage: STRENGTH: 37.5MG/325 MG
     Route: 065
     Dates: end: 20131121
  8. KALEORID [Concomitant]
     Dosage: STRENGTH: 600 MG
     Dates: end: 20131120
  9. HAVLANE [Concomitant]
  10. HAVLANE [Concomitant]
  11. ACENOCOUMAROL [Concomitant]
     Dosage: STRENGTH: 4 MG
  12. LANSOPRAZOLE [Concomitant]
     Dosage: STRENGTH: 30 MG
  13. KARDEGIC [Concomitant]
     Dosage: STRENGTH: 75 MG
  14. HEMIGOXINE NATIVELLE [Concomitant]
     Dosage: STRENGTH: 0.125 MG
  15. IMOVANE [Concomitant]
     Dosage: STRENGTH: 3.75 MG

REACTIONS (4)
  - Fall [Recovered/Resolved]
  - Dizziness [Recovered/Resolved]
  - Blood pressure decreased [Recovered/Resolved]
  - Renal failure [Recovered/Resolved]
